FAERS Safety Report 15888803 (Version 1)
Quarter: 2019Q1

REPORT INFORMATION
  Report Type: Spontaneous
  Country: US (occurrence: US)
  Receive Date: 20190130
  Receipt Date: 20190130
  Transmission Date: 20190417
  Serious: Yes (Other)
  Sender: FDA-Public Use
  Company Number: US-SAKK-2019SA020005AA

PATIENT
  Age: 77 Year
  Sex: Male

DRUGS (3)
  1. LANTUS [Suspect]
     Active Substance: INSULIN GLARGINE
     Dosage: 24 UNITS IN THE MORNING AND 14 UNITS AT NIGHT
     Route: 065
  2. LANTUS [Suspect]
     Active Substance: INSULIN GLARGINE
     Indication: TYPE 2 DIABETES MELLITUS
     Dosage: 14 UNITS IN THE MORNING AND THEN 6 UNITS AROUND 9 PM
     Route: 065
  3. JANUMET [Concomitant]
     Active Substance: METFORMIN HYDROCHLORIDE\SITAGLIPTIN PHOSPHATE
     Indication: DIABETES MELLITUS
     Dosage: UNKNOWN
     Route: 065

REACTIONS (13)
  - Pulmonary oedema [Unknown]
  - Rash generalised [Unknown]
  - Pruritus generalised [Unknown]
  - Burning sensation [Unknown]
  - Rash [Unknown]
  - Joint swelling [Unknown]
  - Drug hypersensitivity [Unknown]
  - Peripheral swelling [Unknown]
  - Dyspnoea [Unknown]
  - Pruritus [Unknown]
  - Inappropriate schedule of product administration [Unknown]
  - Dermatitis [Unknown]
  - Rash [Recovered/Resolved]
